FAERS Safety Report 24167958 (Version 1)
Quarter: 2024Q3

REPORT INFORMATION
  Report Type: Spontaneous
  Country: KE (occurrence: US)
  Receive Date: 20240802
  Receipt Date: 20240802
  Transmission Date: 20241017
  Serious: Yes (Death, Other)
  Sender: INTERCHEM
  Company Number: KE-HQ SPECIALTY-US-2024INT000079

PATIENT

DRUGS (4)
  1. CISPLATIN [Suspect]
     Active Substance: CISPLATIN
     Indication: Neoplasm malignant
     Dosage: 70 MG/M2, Q3W
     Route: 042
  2. PEMIGATINIB [Suspect]
     Active Substance: PEMIGATINIB
     Indication: Neoplasm malignant
     Dosage: 13.5 MG, UNK
     Route: 048
  3. GEMCITABINE HYDROCHLORIDE [Suspect]
     Active Substance: GEMCITABINE HYDROCHLORIDE
     Indication: Neoplasm malignant
     Dosage: 1000 MG/M2, DAY 1 OF EACH 21-DAY CYCLE
     Route: 042
  4. GEMCITABINE HYDROCHLORIDE [Suspect]
     Active Substance: GEMCITABINE HYDROCHLORIDE
     Dosage: 1000 MG/M2, DAY 8 OF EACH 21-DAY CYCLE
     Route: 042

REACTIONS (1)
  - Disease progression [Fatal]
